FAERS Safety Report 5123780-9 (Version None)
Quarter: 2006Q3

REPORT INFORMATION
  Report Type: 
  Country: None (occurrence: None)
  Receive Date: 20060801
  Receipt Date: 20050927
  Transmission Date: 20061208
  Serious: Yes (Hospitalization)
  Sender: FDA-Public Use
  Company Number: DSA_70829-2005

PATIENT
  Age: 35 Year
  Sex: Female
  Weight: 62.1428 kg

DRUGS (5)
  1. AZASAN [Suspect]
     Indication: CROHN'S DISEASE
     Dosage: 75 MG QDAY PO
     Route: 048
     Dates: end: 20050827
  2. COLAZAL [Suspect]
     Indication: COLITIS ULCERATIVE
     Dosage: 2250 MG TID PO
     Route: 048
     Dates: start: 20050301, end: 20050920
  3. COLAZAL [Suspect]
     Indication: CROHN'S DISEASE
     Dosage: 2250 MG TID PO
     Route: 048
     Dates: start: 20050301, end: 20050920
  4. PENTASA [Concomitant]
  5. REMICADE [Concomitant]

REACTIONS (3)
  - BLOOD AMYLASE INCREASED [None]
  - LIPASE INCREASED [None]
  - PANCREATITIS [None]
